FAERS Safety Report 22227650 (Version 2)
Quarter: 2023Q2

REPORT INFORMATION
  Report Type: Spontaneous
  Country: JP (occurrence: JP)
  Receive Date: 20230419
  Receipt Date: 20230607
  Transmission Date: 20230722
  Serious: Yes (Other)
  Sender: FDA-Public Use
  Company Number: JP-SUN PHARMACEUTICAL INDUSTRIES LTD-2023RR-384812

PATIENT
  Age: 12 Year
  Sex: Male
  Weight: 33 kg

DRUGS (4)
  1. NOREPINEPHRINE [Suspect]
     Active Substance: NOREPINEPHRINE
     Indication: Shock
     Dosage: 0.02 MICROGRAM/KILOGRAM/MINUTE,
     Route: 042
  2. NOREPINEPHRINE [Suspect]
     Active Substance: NOREPINEPHRINE
     Indication: Respiratory failure
  3. MILRINONE [Concomitant]
     Active Substance: MILRINONE
     Indication: Shock
     Dosage: 0.2 MICROGRAM/KILOGRAM/MINUTE
     Route: 042
  4. MILRINONE [Concomitant]
     Active Substance: MILRINONE
     Indication: Respiratory failure

REACTIONS (1)
  - Drug ineffective [Recovering/Resolving]
